FAERS Safety Report 7751012-1 (Version None)
Quarter: 2011Q3

REPORT INFORMATION
  Report Type: 
  Country: None (occurrence: None)
  Receive Date: 20110914
  Receipt Date: 20110913
  Transmission Date: 20111222
  Serious: Yes (Hospitalization, Other)
  Sender: FDA-Public Use
  Company Number: JP-ABBOTT-11P-087-0725289-00

PATIENT
  Sex: Female

DRUGS (8)
  1. METHOTREXATE [Suspect]
     Indication: RHEUMATOID ARTHRITIS
     Route: 048
     Dates: start: 20110105, end: 20110125
  2. LANSOPRAZOLE [Concomitant]
     Indication: RHEUMATOID ARTHRITIS
     Route: 048
     Dates: start: 20110105
  3. TRIAMCINOLONE ACETONIDE [Concomitant]
     Indication: PRODUCT USED FOR UNKNOWN INDICATION
     Dosage: TO BOTH SHOULDERS AND WRISTS
     Route: 014
     Dates: start: 20110125, end: 20110125
  4. TRIAMCINOLONE ACETONIDE [Concomitant]
     Dosage: TO ANKLES
     Route: 014
     Dates: start: 20110322, end: 20110322
  5. HUMIRA [Suspect]
     Indication: RHEUMATOID ARTHRITIS
     Route: 058
     Dates: start: 20110322, end: 20110419
  6. CELECOXIB [Concomitant]
     Indication: RHEUMATOID ARTHRITIS
     Dosage: 200 MG DAILY
     Route: 048
     Dates: start: 20110105
  7. METHOTREXATE [Suspect]
     Dates: start: 20110125, end: 20110508
  8. FOLIC ACID [Concomitant]
     Indication: RHEUMATOID ARTHRITIS
     Route: 048
     Dates: start: 20110112, end: 20110510

REACTIONS (2)
  - ARTHRALGIA [None]
  - MENINGITIS NONINFECTIVE [None]
